FAERS Safety Report 7135258-1 (Version None)
Quarter: 2010Q4

REPORT INFORMATION
  Report Type: 
  Country: None (occurrence: None)
  Receive Date: 20101203
  Receipt Date: 20101123
  Transmission Date: 20110411
  Serious: Yes (Hospitalization)
  Sender: FDA-Public Use
  Company Number: A0832748A

PATIENT
  Age: 64 Year
  Sex: Female
  Weight: 86.4 kg

DRUGS (10)
  1. AVANDIA [Suspect]
     Dosage: 8MG PER DAY
     Route: 048
     Dates: start: 20050101, end: 20071229
  2. HYDROCHLOROTHIAZIDE [Concomitant]
     Dates: end: 20080101
  3. GLIPIZIDE [Concomitant]
  4. QUINAPRIL [Concomitant]
  5. CLONIDINE [Concomitant]
  6. SIMVASTATIN [Concomitant]
  7. TRICOR [Concomitant]
  8. COMBIVENT [Concomitant]
  9. FORTAMET [Concomitant]
  10. NORVASC [Concomitant]

REACTIONS (3)
  - CARDIAC FAILURE CONGESTIVE [None]
  - MYOCARDIAL INFARCTION [None]
  - TRANSIENT ISCHAEMIC ATTACK [None]
